FAERS Safety Report 14707025 (Version 2)
Quarter: 2019Q3

REPORT INFORMATION
  Report Type: Report from Study
  Country: None (occurrence: FR)
  Receive Date: 20180403
  Receipt Date: 20190730
  Transmission Date: 20191004
  Serious: Yes (Hospitalization, Other)
  Sender: FDA-Public Use
  Company Number: FR-ABBVIE-18K-056-2306651-00

PATIENT
  Age: 13 Year
  Sex: Female
  Weight: 38 kg

DRUGS (7)
  1. MAG 2 [Concomitant]
     Active Substance: MAGNESIUM
     Indication: MINERAL SUPPLEMENTATION
     Route: 048
  2. HUMIRA [Suspect]
     Active Substance: ADALIMUMAB
     Dosage: 2 INJECTIONS IN 1 DAY
     Route: 058
     Dates: start: 20171228, end: 20171228
  3. HUMIRA [Suspect]
     Active Substance: ADALIMUMAB
     Indication: CROHN^S DISEASE
     Dosage: 4 INJECTIONS IN 1 DAY
     Route: 058
     Dates: start: 20171219, end: 20171219
  4. AZATHIOPRINE. [Concomitant]
     Active Substance: AZATHIOPRINE
     Indication: CROHN^S DISEASE
     Route: 048
     Dates: start: 20171204
  5. LOVENOX [Concomitant]
     Active Substance: ENOXAPARIN SODIUM
     Indication: THROMBOSIS PROPHYLAXIS
     Route: 058
     Dates: start: 20180126, end: 20180208
  6. HUMIRA [Suspect]
     Active Substance: ADALIMUMAB
     Route: 058
     Dates: start: 20180111
  7. HUMIRA [Suspect]
     Active Substance: ADALIMUMAB
     Route: 058
     Dates: end: 20180815

REACTIONS (6)
  - Electrolyte imbalance [Unknown]
  - Malnutrition [Recovered/Resolved]
  - Hypoalbuminaemia [Unknown]
  - Anaemia [Unknown]
  - Pyrexia [Unknown]
  - Colitis ulcerative [Unknown]

NARRATIVE: CASE EVENT DATE: 201712
